FAERS Safety Report 8592112-6 (Version None)
Quarter: 2012Q3

REPORT INFORMATION
  Report Type: 
  Country: None (occurrence: None)
  Receive Date: 20120814
  Receipt Date: 20120809
  Transmission Date: 20120928
  Serious: Yes (Hospitalization)
  Sender: FDA-Public Use
  Company Number: US-ASTRAZENECA-2012SE56339

PATIENT
  Sex: Male

DRUGS (2)
  1. NEXIUM IV [Suspect]
     Route: 042
     Dates: start: 20111101
  2. NEXIUM [Suspect]
     Route: 048
     Dates: start: 20110101

REACTIONS (3)
  - PNEUMONIA ASPIRATION [None]
  - GASTROINTESTINAL HAEMORRHAGE [None]
  - CARDIAC FAILURE CONGESTIVE [None]
